FAERS Safety Report 11737197 (Version 1)
Quarter: 2015Q4

REPORT INFORMATION
  Report Type: Spontaneous
  Country: US (occurrence: US)
  Receive Date: 20151110
  Receipt Date: 20151110
  Transmission Date: 20160304
  Serious: No
  Sender: FDA-Public Use
  Company Number: US-ELI_LILLY_AND_COMPANY-US201206001945

PATIENT
  Sex: Male

DRUGS (1)
  1. FORTEO [Suspect]
     Active Substance: TERIPARATIDE
     Indication: OSTEOPOROSIS
     Dosage: 20 UG, QD
     Dates: start: 201205

REACTIONS (9)
  - Dysstasia [Unknown]
  - Muscular weakness [Unknown]
  - Back pain [Unknown]
  - Ligament sprain [Unknown]
  - Local swelling [Unknown]
  - Cough [Unknown]
  - Musculoskeletal discomfort [Unknown]
  - Malaise [Unknown]
  - Asthenia [Unknown]
